FAERS Safety Report 23302451 (Version 1)
Quarter: 2023Q4

REPORT INFORMATION
  Report Type: Spontaneous
  Country: US (occurrence: US)
  Receive Date: 20231215
  Receipt Date: 20231215
  Transmission Date: 20240109
  Serious: Yes (Other)
  Sender: FDA-Public Use
  Company Number: US-Calliditas-2023CAL01598

PATIENT
  Age: 45 Year
  Sex: Female

DRUGS (2)
  1. TARPEYO [Suspect]
     Active Substance: BUDESONIDE
     Indication: Proteinuria
     Dosage: 16 MG (4 MG CAPSULES) ONCE DAILY
     Route: 048
     Dates: start: 20230719
  2. LISINOPRIL [Concomitant]
     Active Substance: LISINOPRIL

REACTIONS (7)
  - Alport^s syndrome [Unknown]
  - Fluid retention [Unknown]
  - Dyspnoea [Unknown]
  - Face oedema [Unknown]
  - Increased appetite [Unknown]
  - Emotional disorder [Unknown]
  - Off label use [Unknown]
